FAERS Safety Report 21257975 (Version 3)
Quarter: 2022Q4

REPORT INFORMATION
  Report Type: Report from Study
  Country: CN (occurrence: CN)
  Receive Date: 20220826
  Receipt Date: 20221025
  Transmission Date: 20230112
  Serious: Yes (Hospitalization, Other)
  Sender: FDA-Public Use
  Company Number: CN-BRISTOL-MYERS SQUIBB COMPANY-2022-092416

PATIENT
  Age: 67 Year
  Sex: Female

DRUGS (3)
  1. OPDIVO [Suspect]
     Active Substance: NIVOLUMAB
     Indication: Gastric cancer
     Dosage: Q3W (EVERY 3 WEEK)
     Route: 041
     Dates: start: 20220321
  2. OPDIVO [Suspect]
     Active Substance: NIVOLUMAB
     Dosage: Q3W (EVERY 3 WEEK)
     Route: 041
     Dates: start: 20220619
  3. OPDIVO [Suspect]
     Active Substance: NIVOLUMAB
     Dosage: Q2W (EVERY 2 WEEKS)
     Route: 041
     Dates: start: 20220321

REACTIONS (8)
  - Cachexia [Unknown]
  - White blood cell count decreased [Unknown]
  - Asthenia [Unknown]
  - Gait inability [Unknown]
  - Off label use [Unknown]
  - Malnutrition [Unknown]
  - Hypoproteinaemia [Unknown]
  - Nasopharyngitis [Unknown]

NARRATIVE: CASE EVENT DATE: 20221019
